FAERS Safety Report 8330527-1 (Version None)
Quarter: 2012Q2

REPORT INFORMATION
  Report Type: 
  Country: None (occurrence: None)
  Receive Date: 20120502
  Receipt Date: 20120405
  Transmission Date: 20120825
  Serious: No
  Sender: FDA-Public Use
  Company Number: US-AMGEN-USASP2012022056

PATIENT
  Age: 66 Year
  Sex: Female

DRUGS (1)
  1. ENBREL [Suspect]
     Indication: RHEUMATOID ARTHRITIS
     Dosage: 50 MG, QWK
     Dates: start: 20120213

REACTIONS (4)
  - PHARYNGEAL OEDEMA [None]
  - NASAL CONGESTION [None]
  - RHINORRHOEA [None]
  - LYMPHADENOPATHY [None]
